FAERS Safety Report 19321431 (Version 1)
Quarter: 2021Q2

REPORT INFORMATION
  Report Type: Spontaneous
  Country: US (occurrence: US)
  Receive Date: 20210528
  Receipt Date: 20210528
  Transmission Date: 20210717
  Serious: Yes (Hospitalization)
  Sender: FDA-Public Use
  Company Number: None

PATIENT
  Age: 71 Year
  Sex: Male
  Weight: 110.22 kg

DRUGS (1)
  1. LISINOPRIL (LISINOPRIL 40 MG TAB) [Suspect]
     Active Substance: LISINOPRIL
     Route: 048
     Dates: start: 20100321, end: 20210416

REACTIONS (2)
  - Angioedema [None]
  - Therapy interrupted [None]

NARRATIVE: CASE EVENT DATE: 20210416
